FAERS Safety Report 6611057-1 (Version None)
Quarter: 2010Q1

REPORT INFORMATION
  Report Type: 
  Country: None (occurrence: None)
  Receive Date: 20100303
  Receipt Date: 20100217
  Transmission Date: 20100710
  Serious: Yes (Other)
  Sender: FDA-Public Use
  Company Number: JP-RANBAXY-2010RR-31506

PATIENT
  Sex: Male

DRUGS (1)
  1. RANITIDINE [Suspect]

REACTIONS (7)
  - ASTHENIA [None]
  - CIRCULATORY COLLAPSE [None]
  - FLUSHING [None]
  - HEADACHE [None]
  - HOT FLUSH [None]
  - ILL-DEFINED DISORDER [None]
  - PALPITATIONS [None]
